FAERS Safety Report 20460798 (Version 1)
Quarter: 2022Q1

REPORT INFORMATION
  Report Type: Report from Study
  Country: US (occurrence: US)
  Receive Date: 20220211
  Receipt Date: 20220211
  Transmission Date: 20220423
  Serious: Yes (Other)
  Sender: FDA-Public Use
  Company Number: US-SA-2015SA041361

PATIENT
  Age: 56 Year
  Sex: Female

DRUGS (3)
  1. TERIFLUNOMIDE [Suspect]
     Active Substance: TERIFLUNOMIDE
     Indication: Multiple sclerosis
     Dosage: 14 MG,QD
     Route: 048
     Dates: start: 20150129
  2. TERIFLUNOMIDE [Suspect]
     Active Substance: TERIFLUNOMIDE
     Indication: Product used for unknown indication
  3. TECFIDERA [Concomitant]
     Active Substance: DIMETHYL FUMARATE
     Indication: Multiple sclerosis
     Dosage: UNK
     Dates: start: 20140102, end: 20150128

REACTIONS (10)
  - Neoplasm malignant [Unknown]
  - Illness [Unknown]
  - Alopecia [Unknown]
  - Nasopharyngitis [Unknown]
  - Feeling abnormal [Unknown]
  - Herpes zoster [Unknown]
  - Back pain [Unknown]
  - Ear pain [Unknown]
  - Arthropathy [Unknown]
  - Rehabilitation therapy [Unknown]

NARRATIVE: CASE EVENT DATE: 20150101
